FAERS Safety Report 6453094-6 (Version None)
Quarter: 2009Q4

REPORT INFORMATION
  Report Type: 
  Country: None (occurrence: None)
  Receive Date: 20091123
  Receipt Date: 20091123
  Transmission Date: 20100525
  Serious: Yes (Other)
  Sender: FDA-Public Use
  Company Number: None

PATIENT
  Sex: Female
  Weight: 60.782 kg

DRUGS (1)
  1. LISINOPRIL AND HYDROCHLOROTHIAZIDE [Suspect]
     Indication: HYPERTENSION
     Dosage: 20 - 12.5 X 1 DAILY PO
     Route: 048
     Dates: start: 20090301, end: 20090501

REACTIONS (5)
  - ANAEMIA [None]
  - DYSPNOEA [None]
  - MYALGIA [None]
  - RENAL FAILURE [None]
  - SENSATION OF HEAVINESS [None]
